FAERS Safety Report 6816858-2 (Version None)
Quarter: 2010Q3

REPORT INFORMATION
  Report Type: 
  Country: None (occurrence: None)
  Receive Date: 20100706
  Receipt Date: 20100627
  Transmission Date: 20110219
  Serious: Yes (Other)
  Sender: FDA-Public Use
  Company Number: IT-JNJFOC-20100608347

PATIENT
  Age: 32 Year
  Sex: Female

DRUGS (2)
  1. RISPERDAL [Suspect]
     Indication: SELF INJURIOUS BEHAVIOUR
     Route: 065
  2. DEPAKENE [Suspect]
     Indication: SELF INJURIOUS BEHAVIOUR
     Route: 065

REACTIONS (1)
  - SELF INJURIOUS BEHAVIOUR [None]
